FAERS Safety Report 21929553 (Version 2)
Quarter: 2023Q2

REPORT INFORMATION
  Report Type: Report from Study
  Country: US (occurrence: US)
  Receive Date: 20230131
  Receipt Date: 20230502
  Transmission Date: 20230721
  Serious: Yes (Other)
  Sender: FDA-Public Use
  Company Number: US-ABBVIE-4288578

PATIENT
  Sex: Male

DRUGS (1)
  1. VENCLEXTA [Suspect]
     Active Substance: VENETOCLAX
     Indication: Acute myeloid leukaemia
     Route: 048
     Dates: start: 20210301

REACTIONS (5)
  - Retinal tear [Unknown]
  - Joint swelling [Unknown]
  - Vision blurred [Unknown]
  - White blood cell count abnormal [Unknown]
  - Plasma cells increased [Unknown]
